FAERS Safety Report 5674651-0 (Version None)
Quarter: 2008Q1

REPORT INFORMATION
  Report Type: 
  Country: None (occurrence: None)
  Receive Date: 20080320
  Receipt Date: 20080314
  Transmission Date: 20080703
  Serious: Yes (Other)
  Sender: FDA-Public Use
  Company Number: A0711708A

PATIENT
  Age: 42 Year
  Sex: Female

DRUGS (2)
  1. PAZOPANIB [Suspect]
     Dosage: 800MG PER DAY
     Route: 048
     Dates: start: 20071113
  2. LAPATINIB [Suspect]
     Dosage: 1500MG PER DAY
     Route: 048
     Dates: start: 20071113

REACTIONS (3)
  - OEDEMA PERIPHERAL [None]
  - SENSATION OF HEAVINESS [None]
  - VENOUS THROMBOSIS [None]
